FAERS Safety Report 5235624-5 (Version None)
Quarter: 2007Q1

REPORT INFORMATION
  Report Type: 
  Country: None (occurrence: None)
  Receive Date: 20061208
  Receipt Date: 20060208
  Transmission Date: 20070707
  Serious: Yes (Other)
  Sender: FDA-Public Use
  Company Number: 2006UW02177

PATIENT
  Age: 73 Year
  Sex: Female
  Weight: 77.11 kg

DRUGS (12)
  1. CRESTOR [Suspect]
     Indication: HYPERCHOLESTEROLAEMIA
     Dosage: 5 MG QD PO
     Route: 048
     Dates: start: 20060101
  2. SYNTHROID [Concomitant]
  3. PRILOSEC [Concomitant]
  4. ANTIVERT [Concomitant]
  5. GLYBURIDE [Concomitant]
  6. NOVOLIN 70/30 [Concomitant]
  7. GABAPENTIN [Concomitant]
  8. TOPROL-XL [Concomitant]
  9. ZETIA [Concomitant]
  10. LASIX [Concomitant]
  11. LISINOPRIL [Concomitant]
  12. SINGULAIR [Concomitant]

REACTIONS (1)
  - TONGUE DISORDER [None]
